FAERS Safety Report 8322543-0 (Version None)
Quarter: 2012Q2

REPORT INFORMATION
  Report Type: 
  Country: None (occurrence: None)
  Receive Date: 20120430
  Receipt Date: 20100217
  Transmission Date: 20120825
  Serious: No
  Sender: FDA-Public Use
  Company Number: US-TEVA-2010000909

PATIENT
  Sex: Female
  Weight: 95.34 kg

DRUGS (5)
  1. NUVIGIL [Suspect]
     Indication: SLEEP APNOEA SYNDROME
     Dosage: 75 MILLIGRAM;
     Route: 048
     Dates: start: 20091111, end: 20091201
  2. ZOLOFT [Concomitant]
     Indication: DEPRESSION
     Dosage: 50 MILLIGRAM;
  3. CYTOMEL [Concomitant]
     Indication: HYPOTHYROIDISM
     Dosage: 1.25 MILLIGRAM;
     Route: 048
  4. NUVIGIL [Suspect]
     Dosage: 150 MILLIGRAM;
     Route: 048
     Dates: start: 20091201, end: 20091201
  5. TOPROL-XL [Concomitant]
     Indication: TACHYCARDIA
     Dosage: 25 MILLIGRAM;

REACTIONS (1)
  - AMNESIA [None]
